FAERS Safety Report 9796573 (Version 1)
Quarter: 2014Q1

REPORT INFORMATION
  Report Type: Spontaneous
  Country: US (occurrence: US)
  Receive Date: 20140103
  Receipt Date: 20140103
  Transmission Date: 20141002
  Serious: Yes (Death, Other)
  Sender: FDA-Public Use
  Company Number: US-UCBSA-107537

PATIENT
  Age: 22 Year
  Sex: Male

DRUGS (9)
  1. ALPRAZOLAM [Suspect]
     Dosage: ROUTE: PARENTERAL+UNKNOWN
  2. HEROIN [Suspect]
     Dosage: ROUTE: PARENTERAL+UNKNOWN
  3. HYDROCODONE [Suspect]
     Dosage: ROUTE: PARENTERAL+UNKNOWN
  4. OXYCODONE [Suspect]
     Dosage: ROUTE: PARENTERAL+UNKNOWN
  5. TRAMADOL [Suspect]
     Dosage: ROUTE: PARENTERAL+UNKNOWN
  6. CYCLOBENZAPRINE [Suspect]
     Dosage: ROUTE: PARENTERAL+UNKNOWN
  7. DOXYLAMINE [Suspect]
     Dosage: ROUTE: PARENTERAL+UNKNOWN
  8. PHENCYCLIDINE [Suspect]
     Dosage: ROUTE: PARENTERAL+UNKNOWN
  9. ACETAMINOPHEN [Suspect]
     Dosage: ROUTE: PARENTERAL+UNKNOWN

REACTIONS (1)
  - Drug abuse [Fatal]
